FAERS Safety Report 22031936 (Version 3)
Quarter: 2023Q2

REPORT INFORMATION
  Report Type: Report from Study
  Country: GB (occurrence: GB)
  Receive Date: 20230224
  Receipt Date: 20230608
  Transmission Date: 20230722
  Serious: Yes (Other)
  Sender: FDA-Public Use
  Company Number: GB-ABBVIE-4317662

PATIENT
  Sex: Male

DRUGS (2)
  1. CARBIDOPA\LEVODOPA [Suspect]
     Active Substance: CARBIDOPA\LEVODOPA
     Indication: Parkinson^s disease
     Dosage: MD: 3.0; CR: 3.8 AND ED: 2.2
     Route: 050
     Dates: start: 2023
  2. CARBIDOPA\LEVODOPA [Suspect]
     Active Substance: CARBIDOPA\LEVODOPA
     Dosage: 20MGS/5MGS; MD: 3.0; CR: 3.6 AND ED: 2.2
     Route: 050
     Dates: end: 2023

REACTIONS (17)
  - Metastases to peritoneum [Unknown]
  - Dyskinesia [Unknown]
  - Palliative care [Unknown]
  - Cognitive disorder [Unknown]
  - Gastrointestinal carcinoma [Unknown]
  - Emotional distress [Unknown]
  - Abnormal dreams [Unknown]
  - Bowel movement irregularity [Recovered/Resolved]
  - Depressed mood [Unknown]
  - Therapeutic product effect decreased [Unknown]
  - Apathy [Unknown]
  - Anxiety [Unknown]
  - Weight increased [Unknown]
  - Dyschezia [Unknown]
  - Muscle twitching [Unknown]
  - Device occlusion [Unknown]
  - Device issue [Unknown]

NARRATIVE: CASE EVENT DATE: 20230101
